FAERS Safety Report 6615414-9 (Version None)
Quarter: 2010Q1

REPORT INFORMATION
  Report Type: 
  Country: None (occurrence: None)
  Receive Date: 20100305
  Receipt Date: 20091204
  Transmission Date: 20100710
  Serious: No
  Sender: FDA-Public Use
  Company Number: A0817245A

PATIENT
  Sex: Female

DRUGS (11)
  1. REQUIP [Suspect]
     Indication: RESTLESS LEGS SYNDROME
     Dosage: 5MG PER DAY
     Route: 048
     Dates: start: 20020101
  2. ELAVIL [Concomitant]
  3. LOPID [Concomitant]
  4. LASIX [Concomitant]
  5. LEVOTHYROXINE [Concomitant]
  6. ATROVENT [Concomitant]
  7. DITROPAN [Concomitant]
  8. MARINOL [Concomitant]
  9. ZETIA [Concomitant]
  10. PRILOSEC [Concomitant]
  11. AMITRIPTYLINE HCL [Concomitant]

REACTIONS (1)
  - PATHOLOGICAL GAMBLING [None]
